FAERS Safety Report 9351710 (Version 1)
Quarter: 2013Q2

REPORT INFORMATION
  Report Type: Spontaneous
  Country: JP (occurrence: None)
  Receive Date: 20130612
  Receipt Date: 20130612
  Transmission Date: 20140414
  Serious: Yes (Hospitalization)
  Sender: FDA-Public Use
  Company Number: AE-APE-2013-014

PATIENT
  Age: 42 Year
  Sex: Female

DRUGS (4)
  1. MEIACT MS [Suspect]
     Indication: NASOPHARYNGITIS
     Route: 048
     Dates: start: 20130516, end: 20130520
  2. ACETAMINOPHEN\CAFFEINE\METHYLPHENIDATE\PROMETHAZINE\SALICYLAMIDE [Suspect]
     Route: 048
     Dates: start: 20130516, end: 20130520
  3. LOXOPROFEN SODIUM HYDRATE [Suspect]
     Route: 048
     Dates: start: 20130516, end: 20130520
  4. DOMPERIDONE [Suspect]
     Route: 048
     Dates: start: 20120516, end: 20130520

REACTIONS (1)
  - Hepatic function abnormal [None]
